FAERS Safety Report 11940854 (Version 2)
Quarter: 2016Q1

REPORT INFORMATION
  Report Type: Report from Study
  Country: US (occurrence: US)
  Receive Date: 20160122
  Receipt Date: 20160128
  Transmission Date: 20160526
  Serious: Yes (Death)
  Sender: FDA-Public Use
  Company Number: PHEH2016US001733

PATIENT
  Age: 64 Year

DRUGS (5)
  1. LASIX [Concomitant]
     Active Substance: FUROSEMIDE
     Indication: CARDIAC FAILURE CHRONIC
     Dosage: 40 UNK, BID
     Route: 048
  2. COREG [Concomitant]
     Active Substance: CARVEDILOL
     Indication: CARDIAC FAILURE CHRONIC
     Dosage: 12.5 UNK, BID
     Route: 065
  3. ENTRESTO [Suspect]
     Active Substance: SACUBITRIL\VALSARTAN
     Indication: CARDIAC FAILURE CHRONIC
     Dosage: 50 (24/26), BID
     Route: 065
  4. ALDACTONE [Concomitant]
     Active Substance: SPIRONOLACTONE
     Indication: CARDIAC FAILURE CHRONIC
     Dosage: 25 UNK, BID
     Route: 048
  5. COUMADINE [Concomitant]
     Active Substance: WARFARIN SODIUM
     Indication: CARDIAC FAILURE CHRONIC
     Dosage: 2 MG, UNK
     Route: 065

REACTIONS (2)
  - Cardio-respiratory arrest [Fatal]
  - Hypoxia [Fatal]

NARRATIVE: CASE EVENT DATE: 20160119
